FAERS Safety Report 7446408-1 (Version None)
Quarter: 2011Q2

REPORT INFORMATION
  Report Type: 
  Country: None (occurrence: None)
  Receive Date: 20110429
  Receipt Date: 20100908
  Transmission Date: 20111010
  Serious: Yes (Hospitalization)
  Sender: FDA-Public Use
  Company Number: US-ASTRAZENECA-2010SE42506

PATIENT
  Age: 25354 Day
  Sex: Male

DRUGS (1)
  1. NEXIUM [Suspect]
     Route: 048

REACTIONS (6)
  - GASTRECTOMY [None]
  - TUMOUR EXCISION [None]
  - GASTROINTESTINAL PAIN [None]
  - BILE OUTPUT INCREASED [None]
  - OESOPHAGEAL OPERATION [None]
  - OESOPHAGITIS [None]
